FAERS Safety Report 7138385-8 (Version None)
Quarter: 2010Q4

REPORT INFORMATION
  Report Type: 
  Country: None (occurrence: None)
  Receive Date: 20101118
  Receipt Date: 20101013
  Transmission Date: 20110411
  Serious: Yes (Other)
  Sender: FDA-Public Use
  Company Number: US-WYE-H18154210

PATIENT
  Sex: Female

DRUGS (1)
  1. CALTRATE 600 + VITAMIN D (CALCIUM CARBONATE/VITAMIN D, TABLET) [Suspect]
     Indication: PRODUCT USED FOR UNKNOWN INDICATION
     Dosage: ORAL
     Route: 048

REACTIONS (3)
  - ANAPHYLACTIC REACTION [None]
  - PRODUCT FORMULATION ISSUE [None]
  - REACTION TO DRUG EXCIPIENTS [None]
